FAERS Safety Report 15407311 (Version 1)
Quarter: 2018Q4

REPORT INFORMATION
  Report Type: Spontaneous
  Country: JP (occurrence: JP)
  Receive Date: 20180920
  Receipt Date: 20180920
  Transmission Date: 20190204
  Serious: Yes (Other)
  Sender: FDA-Public Use
  Company Number: JP-AMGEN-JPNSP2018130440

PATIENT
  Sex: Male

DRUGS (3)
  1. CALCIUM L-ASPARTATE HYDRATE [Suspect]
     Active Substance: ASPARTIC ACID
     Indication: MINERAL SUPPLEMENTATION
     Dosage: 0.6 G, BID
     Route: 048
     Dates: start: 20180410, end: 20180911
  2. PRALIA [Suspect]
     Active Substance: DENOSUMAB
     Indication: OSTEOPOROSIS
     Dosage: 60 MG, Q6MO 2 TIMES
     Route: 058
  3. EDIROL [Suspect]
     Active Substance: ELDECALCITOL
     Indication: OSTEOPOROSIS
     Dosage: 0.75 MUG, QD
     Route: 048
     Dates: start: 20180410, end: 20180911

REACTIONS (2)
  - Blood calcium increased [Unknown]
  - Blood creatinine increased [Unknown]

NARRATIVE: CASE EVENT DATE: 20180911
